FAERS Safety Report 12289050 (Version 8)
Quarter: 2017Q2

REPORT INFORMATION
  Report Type: Spontaneous
  Country: ES (occurrence: ES)
  Receive Date: 20160421
  Receipt Date: 20170414
  Transmission Date: 20170830
  Serious: Yes (Hospitalization, Other)
  Sender: FDA-Public Use
  Company Number: ES-AMGEN-ESPSP2016049964

PATIENT
  Age: 68 Year
  Sex: Male

DRUGS (11)
  1. ENBREL [Suspect]
     Active Substance: ETANERCEPT
     Indication: RHEUMATOID ARTHRITIS
     Dosage: 50 MG, WEEKLY
     Route: 058
     Dates: start: 20130101
  2. INACID [Concomitant]
     Active Substance: INDOMETHACIN
     Indication: RHEUMATOID ARTHRITIS
     Dosage: UNK, 1X/DAY
  3. METHOTREXATE. [Concomitant]
     Active Substance: METHOTREXATE
     Indication: RHEUMATOID ARTHRITIS
     Dosage: 3 DF, WEEKLY (3 TABLETS ON SUNDAYS)
  4. PREDNISONE. [Concomitant]
     Active Substance: PREDNISONE
     Indication: RHEUMATOID ARTHRITIS
     Dosage: 20 MG, 1X/DAY
  5. FORSTEO [Concomitant]
     Active Substance: TERIPARATIDE
     Indication: BONE DECALCIFICATION
     Dosage: 1 INJECTION, DAILY
  6. CLOPIDOGREL [Concomitant]
     Active Substance: CLOPIDOGREL BISULFATE
     Indication: BLOOD DISORDER
     Dosage: UNK, 1X/DAY
  7. METHOTREXATE. [Concomitant]
     Active Substance: METHOTREXATE
     Dosage: 3 DF, WEEKLY (3 TABLETS ON MONDAYS)
  8. ACFOL [Concomitant]
     Active Substance: FOLIC ACID
     Dosage: 1 DF, WEEKLY (1 TABLET ON TUESDAYS)
  9. TROMALYT [Concomitant]
     Active Substance: ASPIRIN
     Indication: BLOOD DISORDER
     Dosage: UNK, 1X/DAY
  10. ENBREL [Suspect]
     Active Substance: ETANERCEPT
     Dosage: 50 MG, UNK
     Route: 058
     Dates: start: 2016
  11. ACFOL [Concomitant]
     Active Substance: FOLIC ACID
     Dosage: 1 DF, WEEKLY (1 TABLET ON MONDAYS)

REACTIONS (16)
  - Spinal compression fracture [Not Recovered/Not Resolved]
  - Internal haemorrhage [Not Recovered/Not Resolved]
  - Drug effect incomplete [Not Recovered/Not Resolved]
  - Oesophageal mucosal tear [Recovering/Resolving]
  - Calcium deficiency [Not Recovered/Not Resolved]
  - Speech disorder [Unknown]
  - Malignant melanoma [Recovering/Resolving]
  - Cerebrovascular accident [Recovered/Resolved]
  - Gastric disorder [Recovering/Resolving]
  - Mobility decreased [Not Recovered/Not Resolved]
  - Impaired healing [Recovering/Resolving]
  - Dizziness [Unknown]
  - Haematemesis [Unknown]
  - Embolism [Recovering/Resolving]
  - Gait disturbance [Not Recovered/Not Resolved]
  - Haemorrhage [Unknown]

NARRATIVE: CASE EVENT DATE: 201512
